FAERS Safety Report 9528526 (Version 1)
Quarter: 2013Q1

REPORT INFORMATION
  Report Type: Spontaneous
  Country: US (occurrence: None)
  Receive Date: 20130314
  Receipt Date: 20130314
  Transmission Date: 20140127
  Serious: No
  Sender: FDA-Public Use
  Company Number: 1301USA008664

PATIENT
  Sex: Male

DRUGS (3)
  1. VICTRELIS [Suspect]
     Indication: HEPATITIS C
     Route: 048
     Dates: start: 20120610, end: 20121219
  2. PEGINTRON [Suspect]
     Indication: HEPATITIS C
     Dates: start: 20120506, end: 20121219
  3. RIBAPAK (RIBAVIRIN) [Suspect]
     Indication: HEPATITIS C
     Dates: start: 20120506, end: 201210

REACTIONS (4)
  - Depression [None]
  - Anxiety [None]
  - Anger [None]
  - Irritability [None]
